FAERS Safety Report 11278997 (Version 1)
Quarter: 2015Q3

REPORT INFORMATION
  Report Type: Spontaneous
  Country: JP (occurrence: JP)
  Receive Date: 20150717
  Receipt Date: 20150717
  Transmission Date: 20151125
  Serious: Yes (Death)
  Sender: FDA-Public Use
  Company Number: JP-CIPLA LTD.-2015JP05692

PATIENT

DRUGS (2)
  1. CARBOPLATIN. [Suspect]
     Active Substance: CARBOPLATIN
     Indication: CERVIX CARCINOMA RECURRENT
     Dosage: AREA UNDER CURVE 5 MG/ML/MIN ON DAY 1, REPEATED EVERY 3 WEEKS
  2. PACLITAXEL. [Suspect]
     Active Substance: PACLITAXEL
     Indication: CERVIX CARCINOMA RECURRENT
     Dosage: 175 MG/M2 OVER 3 HOURS, REPEATED EVERY 3 WEEKS
     Route: 042

REACTIONS (1)
  - Death [Fatal]
